FAERS Safety Report 11489889 (Version 2)
Quarter: 2015Q3

REPORT INFORMATION
  Report Type: Spontaneous
  Country: FR (occurrence: FR)
  Receive Date: 20150910
  Receipt Date: 20150916
  Transmission Date: 20151125
  Serious: Yes (Other)
  Sender: FDA-Public Use
  Company Number: FR-PFIZER INC-2015296144

PATIENT
  Age: 48 Year
  Sex: Male

DRUGS (9)
  1. MYCAMINE [Concomitant]
     Active Substance: MICAFUNGIN SODIUM
     Dosage: 100 MG, DAILY
     Route: 042
     Dates: start: 20150221
  2. HYDREA [Concomitant]
     Active Substance: HYDROXYUREA
     Dosage: UNK
     Route: 042
  3. LAROXYL [Suspect]
     Active Substance: AMITRIPTYLINE
     Dosage: 25 MG, 2X/DAY
     Route: 042
  4. SUFENTANIL [Concomitant]
     Active Substance: SUFENTANIL
     Dosage: 15 ?G PER HOUR
     Route: 042
  5. VANCOMYCIN [Concomitant]
     Active Substance: VANCOMYCIN
     Dosage: 1 G, DAILY
     Route: 042
     Dates: start: 20150219
  6. PROPOFOL. [Suspect]
     Active Substance: PROPOFOL
     Dosage: UNK
     Route: 042
  7. COLIMYCIN [Concomitant]
     Dosage: UNK
     Route: 048
  8. PIPERACILLIN/TAZOBACTAM [Suspect]
     Active Substance: PIPERACILLIN SODIUM\TAZOBACTAM SODIUM
     Dosage: 12 G, DAILY
     Route: 042
     Dates: start: 20150317
  9. XANAX [Concomitant]
     Active Substance: ALPRAZOLAM
     Dosage: UNK
     Route: 042

REACTIONS (2)
  - Generalised tonic-clonic seizure [Recovered/Resolved]
  - Tonic clonic movements [Recovered/Resolved]

NARRATIVE: CASE EVENT DATE: 20150328
